FAERS Safety Report 10067510 (Version 1)
Quarter: 2014Q2

REPORT INFORMATION
  Report Type: Spontaneous
  Country: IT (occurrence: None)
  Receive Date: 20140407
  Receipt Date: 20140407
  Transmission Date: 20141212
  Serious: Yes (Hospitalization)
  Sender: FDA-Public Use
  Company Number: AUR-APL-2014-04128

PATIENT
  Sex: Female

DRUGS (1)
  1. SIMVASTATIN (SIMVASTATIN) [Suspect]
     Indication: PRODUCT USED FOR UNKNOWN INDICATION

REACTIONS (4)
  - Paraesthesia [None]
  - Hypertensive crisis [None]
  - Tremor [None]
  - Vertigo [None]
